FAERS Safety Report 7316149-X (Version None)
Quarter: 2011Q1

REPORT INFORMATION
  Report Type: 
  Country: None (occurrence: None)
  Receive Date: 20110225
  Receipt Date: 20110222
  Transmission Date: 20110831
  Serious: Yes (Hospitalization)
  Sender: FDA-Public Use
  Company Number: CHPA2011TR03139

PATIENT

DRUGS (1)
  1. THERAFLU FORTE [Suspect]
     Indication: NASOPHARYNGITIS
     Dosage: UNK, UNK
     Route: 065

REACTIONS (1)
  - MYOCARDIAL INFARCTION [None]
